FAERS Safety Report 8144819-2 (Version None)
Quarter: 2012Q1

REPORT INFORMATION
  Report Type: 
  Country: None (occurrence: None)
  Receive Date: 20120217
  Receipt Date: 20120210
  Transmission Date: 20120608
  Serious: Yes (Hospitalization)
  Sender: FDA-Public Use
  Company Number: IT-JNJFOC-20120206201

PATIENT
  Age: 26 Year
  Sex: Male
  Weight: 120 kg

DRUGS (2)
  1. PALIPERIDONE PALMITATE [Suspect]
  2. PALIPERIDONE PALMITATE [Suspect]
     Indication: SCHIZOPHRENIA
     Dates: start: 20120109

REACTIONS (1)
  - SCHIZOPHRENIA [None]
